FAERS Safety Report 17166933 (Version 1)
Quarter: 2019Q4

REPORT INFORMATION
  Report Type: Spontaneous
  Country: KR (occurrence: KR)
  Receive Date: 20191217
  Receipt Date: 20191217
  Transmission Date: 20200122
  Serious: Yes (Other)
  Sender: FDA-Public Use
  Company Number: KR-INCYTE CORPORATION-2019IN012381

PATIENT

DRUGS (1)
  1. JAKAVI [Suspect]
     Active Substance: RUXOLITINIB
     Indication: HODGKIN^S DISEASE
     Dosage: 20 MG, CYCLIC (TWICE DAILY FOR A 28-DAY CYCLE, 2 CYCLES)
     Route: 065

REACTIONS (3)
  - Product use in unapproved indication [Unknown]
  - Hodgkin^s disease [Unknown]
  - Malignant neoplasm progression [Unknown]
